FAERS Safety Report 6178745-5 (Version None)
Quarter: 2009Q2

REPORT INFORMATION
  Report Type: 
  Country: None (occurrence: None)
  Receive Date: 20090504
  Receipt Date: 20081110
  Transmission Date: 20091009
  Serious: No
  Sender: FDA-Public Use
  Company Number: US-ALEXION-A200800256

PATIENT

DRUGS (6)
  1. SOLIRIS [Suspect]
     Indication: PAROXYSMAL NOCTURNAL HAEMOGLOBINURIA
     Dosage: 600 MG, QWK
     Route: 042
     Dates: start: 20080910, end: 20081001
  2. SOLIRIS [Suspect]
     Dosage: 900 MG, UNK
     Route: 042
     Dates: start: 20081008
  3. LOVENOX [Concomitant]
     Dosage: 1 MG, QD
  4. FORTEO [Concomitant]
     Indication: ARTHRITIS
     Dosage: 1 MG, QD
  5. CELEBREX [Concomitant]
     Indication: ARTHRITIS
     Dosage: 200 MG, QD
     Route: 048
  6. MULTIVITAMIN                       /00831701/ [Concomitant]
     Dosage: UNK, QD
     Route: 048

REACTIONS (2)
  - HYPERSENSITIVITY [None]
  - RASH GENERALISED [None]
